FAERS Safety Report 19922970 (Version 2)
Quarter: 2021Q4

REPORT INFORMATION
  Report Type: Report from Study
  Country: ZA (occurrence: ZA)
  Receive Date: 20211005
  Receipt Date: 20211213
  Transmission Date: 20220303
  Serious: Yes (Hospitalization)
  Sender: FDA-Public Use
  Company Number: ZA-GILEAD-2021-0550692

PATIENT
  Age: 1 Day
  Sex: Male
  Weight: 1.09 kg

DRUGS (4)
  1. EMTRICITABINE\TENOFOVIR [Suspect]
     Active Substance: EMTRICITABINE\TENOFOVIR
     Indication: HIV infection
     Dosage: 50/25/200 MG QD
     Route: 064
     Dates: start: 2021, end: 20210728
  2. EMTRICITABINE\TENOFOVIR [Suspect]
     Active Substance: EMTRICITABINE\TENOFOVIR
     Dosage: 50/25/200 MG QD
     Route: 063
     Dates: start: 20210728
  3. NEVIRAPINE [Concomitant]
     Active Substance: NEVIRAPINE
  4. OXYGEN [Concomitant]
     Active Substance: OXYGEN

REACTIONS (4)
  - Low birth weight baby [Recovered/Resolved with Sequelae]
  - Anaemia [Unknown]
  - Foetal exposure during pregnancy [Recovered/Resolved]
  - Exposure via breast milk [Not Recovered/Not Resolved]

NARRATIVE: CASE EVENT DATE: 20210101
